FAERS Safety Report 16911222 (Version 1)
Quarter: 2019Q4

REPORT INFORMATION
  Report Type: Spontaneous
  Country: ES (occurrence: ES)
  Receive Date: 20191012
  Receipt Date: 20191012
  Transmission Date: 20200122
  Serious: Yes (Death)
  Sender: FDA-Public Use
  Company Number: ES-B.I. PHARMACEUTICALS,INC./RIDGEFIELD-2019-BI-107009

PATIENT
  Age: 62 Year
  Sex: Female

DRUGS (6)
  1. VARGATEF [Suspect]
     Active Substance: NINTEDANIB
     Indication: LUNG ADENOCARCINOMA
     Route: 065
     Dates: start: 20180301, end: 201803
  2. DOCETAXEL. [Suspect]
     Active Substance: DOCETAXEL
     Indication: ANAPLASTIC LYMPHOMA KINASE GENE MUTATION
  3. VARGATEF [Suspect]
     Active Substance: NINTEDANIB
     Indication: EGFR GENE MUTATION
     Route: 065
     Dates: start: 201803
  4. DOCETAXEL. [Suspect]
     Active Substance: DOCETAXEL
     Indication: LUNG ADENOCARCINOMA
     Route: 065
     Dates: start: 20180301, end: 20180619
  5. VARGATEF [Suspect]
     Active Substance: NINTEDANIB
     Indication: ANAPLASTIC LYMPHOMA KINASE GENE MUTATION
  6. DOCETAXEL. [Suspect]
     Active Substance: DOCETAXEL
     Indication: EGFR GENE MUTATION

REACTIONS (4)
  - Hypoaesthesia [Unknown]
  - Asthenia [Unknown]
  - Malignant neoplasm progression [Fatal]
  - Hepatotoxicity [Unknown]

NARRATIVE: CASE EVENT DATE: 201803
